FAERS Safety Report 5097961-7 (Version None)
Quarter: 2006Q3

REPORT INFORMATION
  Report Type: 
  Country: None (occurrence: None)
  Receive Date: 20060905
  Receipt Date: 20060824
  Transmission Date: 20061208
  Serious: Yes (Death, Other)
  Sender: FDA-Public Use
  Company Number: PHBS2006CZ12004

PATIENT
  Age: 59 Year
  Sex: Male

DRUGS (6)
  1. CYCLOSPORINE [Suspect]
     Indication: HEART TRANSPLANT
  2. MYCOPHENOLATE MOFETIL [Suspect]
     Indication: HEART TRANSPLANT
  3. AZATHIOPRINE [Suspect]
     Indication: HEART TRANSPLANT
  4. PREDNISONE TAB [Suspect]
     Indication: HEART TRANSPLANT
     Dosage: 0.5 MG/KG/D
  5. METHYLPREDNISOLONE [Suspect]
     Indication: HEART TRANSPLANT
  6. CELLCEPT [Suspect]
     Indication: HEART TRANSPLANT
     Dosage: 2 G/D

REACTIONS (31)
  - ANAEMIA [None]
  - CEREBRAL ATROPHY [None]
  - CEREBRAL HAEMORRHAGE [None]
  - CEREBRAL ISCHAEMIA [None]
  - CHRONIC ALLOGRAFT NEPHROPATHY [None]
  - CHRONIC OBSTRUCTIVE PULMONARY DISEASE [None]
  - CYTOMEGALOVIRUS INFECTION [None]
  - DIFFUSE LARGE B-CELL LYMPHOMA [None]
  - DRUG INEFFECTIVE [None]
  - ENTEROBACTER INFECTION [None]
  - ESCHERICHIA INFECTION [None]
  - FACIAL PARESIS [None]
  - HAEMODIALYSIS [None]
  - HEADACHE [None]
  - HEART TRANSPLANT REJECTION [None]
  - HERPES ZOSTER [None]
  - HYPERKALAEMIA [None]
  - INTERSTITIAL LUNG DISEASE [None]
  - KIDNEY TRANSPLANT REJECTION [None]
  - LUNG INFILTRATION [None]
  - LYMPHOPROLIFERATIVE DISORDER [None]
  - MULTI-ORGAN FAILURE [None]
  - NEPHROPATHY TOXIC [None]
  - OCULOMOTOR STUDY ABNORMAL [None]
  - PARAESTHESIA [None]
  - PNEUMONIA FUNGAL [None]
  - RENAL FAILURE [None]
  - RENAL PAIN [None]
  - RENAL TRANSPLANT [None]
  - SEPSIS [None]
  - THERAPEUTIC AGENT TOXICITY [None]
